FAERS Safety Report 20224199 (Version 2)
Quarter: 2022Q2

REPORT INFORMATION
  Report Type: Spontaneous
  Country: US (occurrence: US)
  Receive Date: 20211223
  Receipt Date: 20220420
  Transmission Date: 20220720
  Serious: Yes (Other)
  Sender: FDA-Public Use
  Company Number: US-ELI_LILLY_AND_COMPANY-US202112010281

PATIENT
  Age: 62 Year
  Sex: Male
  Weight: 95 kg

DRUGS (4)
  1. ETESEVIMAB [Suspect]
     Active Substance: ETESEVIMAB
     Indication: COVID-19
     Dosage: 1400 MG, SINGLE
     Route: 042
     Dates: start: 20211217, end: 20211217
  2. BAMLANIVIMAB [Suspect]
     Active Substance: BAMLANIVIMAB
     Indication: COVID-19
     Dosage: 700 MG, SINGLE
     Route: 042
     Dates: start: 20211217, end: 20211217
  3. ACETAMINOPHEN [Concomitant]
     Active Substance: ACETAMINOPHEN
     Dosage: UNK, UNKNOWN
     Route: 065
     Dates: start: 20211217
  4. OXYCODONE [Concomitant]
     Active Substance: OXYCODONE
     Dosage: UNK UNK, UNKNOWN
     Route: 065
     Dates: start: 20211217

REACTIONS (3)
  - Hypoaesthesia [Unknown]
  - Abdominal pain [Unknown]
  - Faeces discoloured [Unknown]

NARRATIVE: CASE EVENT DATE: 20211218
